FAERS Safety Report 9031152 (Version 1)
Quarter: 2013Q1

REPORT INFORMATION
  Report Type: Spontaneous
  Country: US (occurrence: US)
  Receive Date: 20130123
  Receipt Date: 20130123
  Transmission Date: 20140127
  Serious: Yes (Other)
  Sender: FDA-Public Use
  Company Number: US-ELI_LILLY_AND_COMPANY-US201301004296

PATIENT
  Age: 72 Year
  Sex: Female

DRUGS (2)
  1. HUMULIN 30% REGULAR, 70% NPH [Suspect]
  2. HUMULIN 30% REGULAR, 70% NPH [Suspect]

REACTIONS (4)
  - Neoplasm malignant [Not Recovered/Not Resolved]
  - Nerve injury [Not Recovered/Not Resolved]
  - Spinal disorder [Not Recovered/Not Resolved]
  - Liver disorder [Not Recovered/Not Resolved]
